FAERS Safety Report 6274045-3 (Version None)
Quarter: 2009Q3

REPORT INFORMATION
  Report Type: 
  Country: None (occurrence: None)
  Receive Date: 20090720
  Receipt Date: 20090707
  Transmission Date: 20100115
  Serious: Yes (Other)
  Sender: FDA-Public Use
  Company Number: US-ELI_LILLY_AND_COMPANY-US200907001793

PATIENT
  Age: 55 Year
  Sex: Male

DRUGS (3)
  1. ZYPREXA [Suspect]
     Indication: BIPOLAR I DISORDER
     Dosage: 10 MG, UNK
     Route: 048
     Dates: start: 20090101
  2. PROZAC [Suspect]
     Indication: BIPOLAR I DISORDER
  3. LITHIUM [Concomitant]
     Indication: BIPOLAR I DISORDER

REACTIONS (4)
  - CROHN'S DISEASE [None]
  - GYNAECOMASTIA [None]
  - OFF LABEL USE [None]
  - WEIGHT INCREASED [None]
